FAERS Safety Report 6565937-6 (Version None)
Quarter: 2010Q1

REPORT INFORMATION
  Report Type: 
  Country: None (occurrence: None)
  Receive Date: 20100129
  Receipt Date: 20100129
  Transmission Date: 20100710
  Serious: Yes (Hospitalization)
  Sender: FDA-Public Use
  Company Number: None

PATIENT
  Sex: Male
  Weight: 46.2669 kg

DRUGS (2)
  1. DEPAKOTE ER [Suspect]
     Indication: ABNORMAL BEHAVIOUR
     Dosage: 1500 MG Q HS PO
     Route: 048
  2. DEPAKOTE ER [Suspect]
     Indication: AUTISM
     Dosage: 1500 MG Q HS PO
     Route: 048

REACTIONS (1)
  - ABNORMAL BEHAVIOUR [None]
